FAERS Safety Report 24294685 (Version 1)
Quarter: 2024Q3

REPORT INFORMATION
  Report Type: Spontaneous
  Country: CN (occurrence: CN)
  Receive Date: 20240906
  Receipt Date: 20240906
  Transmission Date: 20241016
  Serious: Yes (Other)
  Sender: MERCK
  Company Number: CN-009507513-2409CHN000760

PATIENT
  Age: 80 Year
  Sex: Female
  Weight: 60 kg

DRUGS (4)
  1. INVANZ [Suspect]
     Active Substance: ERTAPENEM SODIUM
     Indication: Escherichia urinary tract infection
     Dosage: 1G, ONCE A DAY
     Route: 041
     Dates: start: 20240819, end: 20240819
  2. TOFACITINIB CITRATE [Concomitant]
     Active Substance: TOFACITINIB CITRATE
     Indication: Rheumatoid arthritis
     Dosage: 5MG, ONCE A DAY
     Route: 048
     Dates: start: 20240123, end: 20240830
  3. SODIUM CHLORIDE [Concomitant]
     Active Substance: SODIUM CHLORIDE
     Indication: Medication dilution
     Dosage: 100 ML, ONCE A DAY
     Route: 041
     Dates: start: 20240819, end: 20240819
  4. CELECOXIB [Concomitant]
     Active Substance: CELECOXIB
     Indication: Pain

REACTIONS (4)
  - Palpitations [Recovered/Resolved]
  - Chest discomfort [Recovering/Resolving]
  - Headache [Recovered/Resolved]
  - Dyspnoea [Recovered/Resolved]

NARRATIVE: CASE EVENT DATE: 20240819
